FAERS Safety Report 21531720 (Version 2)
Quarter: 2022Q4

REPORT INFORMATION
  Report Type: Report from Study
  Country: US (occurrence: US)
  Receive Date: 20221031
  Receipt Date: 20221109
  Transmission Date: 20230113
  Serious: Yes (Other)
  Sender: FDA-Public Use
  Company Number: US-BRISTOL-MYERS SQUIBB COMPANY-2022-127612

PATIENT
  Age: 72 Year
  Sex: Male
  Weight: 73.9 kg

DRUGS (4)
  1. AZACITIDINE [Suspect]
     Active Substance: AZACITIDINE
     Indication: Product used for unknown indication
     Route: 065
     Dates: start: 20190401
  2. AZACITIDINE [Suspect]
     Active Substance: AZACITIDINE
     Dosage: CYCLE 1OF AZACITIDINE 75MG/M2 IV X 7 DAYS OF A 28 DAY CYCLE STARTING 07-SEP-2018
     Route: 042
     Dates: start: 20180907
  3. AZACITIDINE [Suspect]
     Active Substance: AZACITIDINE
     Dosage: CYCLE 2 OF AZACITIDINE STARTING 05-OCT-2018
     Route: 065
     Dates: start: 20181005
  4. AZACITIDINE [Suspect]
     Active Substance: AZACITIDINE
     Dosage: 32 MG/M2 SQ X 5 DAYS ON A 28 DAY CYCLE X 7 CYCLES FROM 01-APR-2019 TO 20-SEP-2019
     Route: 058
     Dates: start: 20190401, end: 20190920

REACTIONS (1)
  - Squamous cell carcinoma of skin [Recovered/Resolved]

NARRATIVE: CASE EVENT DATE: 20220808
